FAERS Safety Report 12762048 (Version 2)
Quarter: 2016Q4

REPORT INFORMATION
  Report Type: Spontaneous
  Country: US (occurrence: US)
  Receive Date: 20160920
  Receipt Date: 20161128
  Transmission Date: 20170207
  Serious: No
  Sender: FDA-Public Use
  Company Number: US-PFIZER INC-2016434107

PATIENT
  Age: 63 Year
  Sex: Female

DRUGS (3)
  1. LETROZOLE. [Suspect]
     Active Substance: LETROZOLE
     Indication: CARCINOEMBRYONIC ANTIGEN INCREASED
     Dosage: 2.5 MG, 1X/DAY
     Route: 048
     Dates: start: 20160820
  2. IBRANCE [Suspect]
     Active Substance: PALBOCICLIB
     Indication: CARCINOEMBRYONIC ANTIGEN INCREASED
     Dosage: 125 MG, CYCLIC (QD X21 DAYS ON, 7 DAYS OFF )
     Route: 048
     Dates: start: 201610
  3. IBRANCE [Suspect]
     Active Substance: PALBOCICLIB
     Indication: BREAST CANCER
     Dosage: 125 MG, DAILY (1 CAPSULE FOR 21 DAYS)
     Dates: start: 20160820, end: 20160907

REACTIONS (1)
  - White blood cell count decreased [Recovered/Resolved]

NARRATIVE: CASE EVENT DATE: 20160907
